FAERS Safety Report 20845578 (Version 1)
Quarter: 2022Q2

REPORT INFORMATION
  Report Type: Report from Study
  Country: DE (occurrence: None)
  Receive Date: 20220518
  Receipt Date: 20220518
  Transmission Date: 20220720
  Serious: Yes (Death, Other)
  Sender: FDA-Public Use
  Company Number: 2022A180359

PATIENT
  Age: 51 Year
  Sex: Female

DRUGS (2)
  1. OLAPARIB [Suspect]
     Active Substance: OLAPARIB
     Indication: Ovarian epithelial cancer
     Route: 048
  2. NIRAPARIB [Suspect]
     Active Substance: NIRAPARIB
     Indication: Ovarian epithelial cancer
     Route: 065

REACTIONS (4)
  - Toxicity to various agents [Unknown]
  - Myelodysplastic syndrome [Fatal]
  - Drug intolerance [Unknown]
  - Fatigue [Unknown]
